FAERS Safety Report 5967541-7 (Version None)
Quarter: 2008Q4

REPORT INFORMATION
  Report Type: 
  Country: None (occurrence: None)
  Receive Date: 20081125
  Receipt Date: 20081114
  Transmission Date: 20090506
  Serious: Yes (Life-Threatening)
  Sender: FDA-Public Use
  Company Number: IT-PFIZER INC-2008096914

PATIENT
  Sex: Female

DRUGS (5)
  1. SUTENT [Suspect]
     Indication: RENAL CANCER
     Route: 048
     Dates: start: 20081018, end: 20081022
  2. ATENOLOL [Concomitant]
  3. NIFEDIPINE [Concomitant]
  4. GLIBOMET [Concomitant]
  5. LORTAAN [Concomitant]

REACTIONS (2)
  - EPISTAXIS [None]
  - SHOCK HAEMORRHAGIC [None]
